FAERS Safety Report 6460570-9 (Version None)
Quarter: 2009Q4

REPORT INFORMATION
  Report Type: 
  Country: None (occurrence: None)
  Receive Date: 20091125
  Receipt Date: 20091125
  Transmission Date: 20100525
  Serious: Yes (Hospitalization)
  Sender: FDA-Public Use
  Company Number: None

PATIENT
  Age: 80 Year
  Sex: Female

DRUGS (1)
  1. SCOPE OUTLAST MOUTHWASH, LONG LASTING PEPERMINT THE PROCTER + GAMBLE C [Suspect]
     Dosage: 1 APPLICATION 1 ONLY INTRAORAL
     Route: 048
     Dates: start: 20091105, end: 20091105

REACTIONS (8)
  - BURNING SENSATION [None]
  - DISCOMFORT [None]
  - DYSPHAGIA [None]
  - FEELING ABNORMAL [None]
  - HYPERSENSITIVITY [None]
  - PHARYNGEAL OEDEMA [None]
  - SWOLLEN TONGUE [None]
  - TONGUE HAEMORRHAGE [None]
